FAERS Safety Report 14466137 (Version 1)
Quarter: 2018Q1

REPORT INFORMATION
  Report Type: Spontaneous
  Country: US (occurrence: US)
  Receive Date: 20180131
  Receipt Date: 20180131
  Transmission Date: 20180509
  Serious: No
  Sender: FDA-Public Use
  Company Number: US-ENDO PHARMACEUTICALS INC-2017-002553

PATIENT
  Sex: Female

DRUGS (1)
  1. TRIAMCINOLONE ACETONIDE LOTION 0.1 [Suspect]
     Active Substance: TRIAMCINOLONE ACETONIDE
     Indication: SKIN EXFOLIATION
     Dosage: UNK UNK, UNKNOWN
     Route: 065
     Dates: start: 20170406

REACTIONS (3)
  - Drug ineffective [Unknown]
  - Condition aggravated [Unknown]
  - Skin irritation [Unknown]
